FAERS Safety Report 23859103 (Version 1)
Quarter: 2024Q2

REPORT INFORMATION
  Report Type: Spontaneous
  Country: US (occurrence: None)
  Receive Date: 20240515
  Receipt Date: 20240515
  Transmission Date: 20240715
  Serious: Yes (Hospitalization)
  Sender: FDA-Public Use
  Company Number: None

PATIENT
  Sex: Female

DRUGS (1)
  1. CAPECITABINE [Suspect]
     Active Substance: CAPECITABINE
     Indication: Appendix cancer
     Dosage: FREQUENCY : AS DIRECTED;?
     Route: 048
     Dates: start: 202403

REACTIONS (1)
  - Diarrhoea [None]
